FAERS Safety Report 5928439-3 (Version None)
Quarter: 2008Q4

REPORT INFORMATION
  Report Type: 
  Country: None (occurrence: None)
  Receive Date: 20081020
  Receipt Date: 20081010
  Transmission Date: 20090506
  Serious: Yes (Other)
  Sender: FDA-Public Use
  Company Number: FRP08001085

PATIENT
  Age: 50 Year
  Sex: Female

DRUGS (11)
  1. ACTONEL [Suspect]
     Indication: OSTEOPOROSIS
     Dosage: 35 MG, 1 /WEEK, ORAL
     Route: 048
     Dates: end: 20080101
  2. ACTONEL [Suspect]
     Indication: OSTEOPOROSIS
     Dosage: 5 MG, DAILY, ORAL
     Route: 048
  3. CORTISONE ACETATE [Suspect]
     Indication: POLYARTHRITIS
     Dosage: ORAL
     Route: 048
     Dates: end: 20070101
  4. OROCAL VITAMIN D (CALCIUM CARBONATE, COLECALCIFEROL) [Concomitant]
  5. AVLOCARDYL /00030002/ (PROPRANOLOL HYDROCHLORIDE) [Concomitant]
  6. HYTACAND (CANDESARTAN CILEXETIL, HYDROCHLOROTHIAZIDE) [Concomitant]
  7. MEDIATENSYL /00631801/ (URAPIDIL) [Concomitant]
  8. ZELITREX /01269701/ (VALACICLOVIR) [Concomitant]
  9. NEXIUM [Concomitant]
  10. GELDENE (PIROXICAM) GEL [Concomitant]
  11. DIHYDROERGOTAMINE MESYLATE [Concomitant]

REACTIONS (4)
  - CHOLELITHIASIS [None]
  - TOOTH ABSCESS [None]
  - TOOTH FRACTURE [None]
  - TOOTH LOSS [None]
